APPROVED DRUG PRODUCT: WEGOVY
Active Ingredient: SEMAGLUTIDE
Strength: 4MG
Dosage Form/Route: TABLET;ORAL
Application: N218316 | Product #002
Applicant: NOVO NORDISK INC
Approved: Dec 22, 2025 | RLD: Yes | RS: No | Type: RX

PATENTS:
Patent 12396953 | Expires: Feb 1, 2039
Patent 12239739 | Expires: May 2, 2034
Patent 11833248 | Expires: Feb 1, 2039
Patent 10278923 | Expires: May 2, 2034
Patent 8129343 | Expires: Dec 5, 2031
Patent 8536122 | Expires: Mar 20, 2026
Patent 11382957 | Expires: Dec 16, 2031